FAERS Safety Report 9840233 (Version 2)
Quarter: 2014Q1

REPORT INFORMATION
  Report Type: Spontaneous
  Country: US (occurrence: None)
  Receive Date: 20131211
  Receipt Date: 20131211
  Transmission Date: 20141002
  Serious: Yes (Other)
  Sender: FDA-Public Use
  Company Number: ALL1-2012-02704

PATIENT
  Age: 48 Year
  Sex: Male

DRUGS (1)
  1. FIRAZYR [Suspect]
     Indication: HEREDITARY ANGIOEDEMA
     Dosage: 30 MG, AS REQ^D, SUBCUTANEOUS
     Route: 058
     Dates: start: 20120330

REACTIONS (1)
  - Drug ineffective [None]
